FAERS Safety Report 9365095 (Version 1)
Quarter: 2013Q2

REPORT INFORMATION
  Report Type: Spontaneous
  Country: US (occurrence: US)
  Receive Date: 20130624
  Receipt Date: 20130624
  Transmission Date: 20140414
  Serious: No
  Sender: FDA-Public Use
  Company Number: US-PFIZER INC-2013138625

PATIENT
  Age: 56 Year
  Sex: Female
  Weight: 61.22 kg

DRUGS (2)
  1. XELJANZ [Suspect]
     Indication: RHEUMATOID ARTHRITIS
     Dosage: 5 MG, 2X/DAY
     Dates: start: 201304
  2. DOXYCYCLINE [Concomitant]
     Dosage: UNK

REACTIONS (2)
  - Blood cholesterol increased [Unknown]
  - Pain in extremity [Unknown]
